FAERS Safety Report 13478041 (Version 2)
Quarter: 2017Q3

REPORT INFORMATION
  Report Type: Report from Study
  Country: US (occurrence: US)
  Receive Date: 20170424
  Receipt Date: 20170728
  Transmission Date: 20171127
  Serious: No
  Sender: FDA-Public Use
  Company Number: US-AMGEN-USASL2017019584

PATIENT
  Age: 78 Year
  Sex: Male

DRUGS (1)
  1. REPATHA [Suspect]
     Active Substance: EVOLOCUMAB
     Indication: HYPERCHOLESTEROLAEMIA
     Dosage: 140 MG,1ST AND 15TH OF EVERY MONTH
     Route: 065

REACTIONS (7)
  - Oropharyngeal pain [Unknown]
  - Cough [Unknown]
  - Asthenia [Unknown]
  - Influenza like illness [Unknown]
  - Sneezing [Unknown]
  - Pain [Unknown]
  - Rhinorrhoea [Unknown]
